FAERS Safety Report 9080652 (Version 1)
Quarter: 2013Q1

REPORT INFORMATION
  Report Type: Report from Study
  Country: US (occurrence: US)
  Receive Date: 20130130
  Receipt Date: 20130130
  Transmission Date: 20140127
  Serious: No
  Sender: FDA-Public Use
  Company Number: US-ABBOTT-12P-163-0957657-00

PATIENT
  Age: 29 Year
  Sex: Male
  Weight: 113.5 kg

DRUGS (7)
  1. HUMIRA 40 MG/0.8 ML PEN [Suspect]
     Indication: CROHN^S DISEASE
     Dates: start: 20120629
  2. DECADRON [Concomitant]
     Indication: CROHN^S DISEASE
  3. LOMOTIL [Concomitant]
     Indication: CROHN^S DISEASE
  4. COMPAZINE [Concomitant]
     Indication: CROHN^S DISEASE
  5. NORCO [Concomitant]
     Indication: PAIN
  6. PREVACID [Concomitant]
     Indication: CROHN^S DISEASE
  7. ALDACTONE [Concomitant]
     Indication: OEDEMA PERIPHERAL
     Dates: start: 201206

REACTIONS (3)
  - Local swelling [Not Recovered/Not Resolved]
  - Local swelling [Not Recovered/Not Resolved]
  - Nausea [Not Recovered/Not Resolved]
